FAERS Safety Report 14231455 (Version 2)
Quarter: 2017Q4

REPORT INFORMATION
  Report Type: Spontaneous
  Country: US (occurrence: US)
  Receive Date: 20171128
  Receipt Date: 20171212
  Transmission Date: 20180321
  Serious: No
  Sender: FDA-Public Use
  Company Number: US-JNJFOC-20171115684

PATIENT
  Age: 50 Year
  Sex: Female
  Weight: 62.14 kg

DRUGS (2)
  1. WOMENS ROGAINE [Suspect]
     Active Substance: MINOXIDIL
     Indication: ALOPECIA
     Route: 061
     Dates: start: 20171023, end: 20171030
  2. WOMENS ROGAINE [Suspect]
     Active Substance: MINOXIDIL
     Route: 061

REACTIONS (5)
  - Eye swelling [Recovered/Resolved]
  - Asthenopia [Recovered/Resolved]
  - Hair disorder [Recovered/Resolved]
  - Inappropriate schedule of drug administration [Unknown]
  - Skin tightness [Recovered/Resolved]

NARRATIVE: CASE EVENT DATE: 201710
